FAERS Safety Report 7092571-4 (Version None)
Quarter: 2010Q4

REPORT INFORMATION
  Report Type: 
  Country: None (occurrence: None)
  Receive Date: 20101110
  Receipt Date: 20101103
  Transmission Date: 20110411
  Serious: Yes (Hospitalization)
  Sender: FDA-Public Use
  Company Number: SG-BAYER-201044307GPV

PATIENT
  Sex: Female

DRUGS (1)
  1. YASMIN [Suspect]
     Indication: CONTRACEPTION
     Dates: start: 20090801

REACTIONS (4)
  - CHEST PAIN [None]
  - COLLAPSE OF LUNG [None]
  - DYSPNOEA [None]
  - PULMONARY THROMBOSIS [None]
